FAERS Safety Report 11529150 (Version 1)
Quarter: 2015Q3

REPORT INFORMATION
  Report Type: Spontaneous
  Country: BR (occurrence: BR)
  Receive Date: 20150921
  Receipt Date: 20150921
  Transmission Date: 20151125
  Serious: Yes (Hospitalization, Other)
  Sender: FDA-Public Use
  Company Number: BR-TORRENT-00003104

PATIENT
  Age: 37 Year
  Sex: Female
  Weight: 66 kg

DRUGS (4)
  1. RIVOTRIL [Concomitant]
     Active Substance: CLONAZEPAM
     Indication: SEDATIVE THERAPY
     Dosage: DOSE NUMBER IS UNKNOWN/ 5 DROPS IN THE MORNING AND 20 DROPS AT NIGHT/ ORAL
     Route: 048
     Dates: start: 1996
  2. LAMITOR [Suspect]
     Active Substance: LAMOTRIGINE
     Indication: BIPOLAR DISORDER
     Dosage: LAMITOR 100 MG FIVE TIMES DAILY/ ORAL
     Route: 048
     Dates: start: 2014
  3. SEMPREE [Concomitant]
     Indication: VITAMIN SUPPLEMENTATION
     Dosage: DOSE NUMBER IS UNKNOWN/ ONCE DAILY/ ORAL
     Route: 048
     Dates: start: 201412
  4. SUPRADYN ATIVA [Concomitant]
     Indication: VITAMIN SUPPLEMENTATION
     Dosage: DOSE NUMBER IS UNKNOWN/ ONCE DAILY/ ORAL
     Route: 048
     Dates: start: 201412

REACTIONS (5)
  - Drug ineffective [Not Recovered/Not Resolved]
  - Bipolar disorder [None]
  - Off label use [Not Recovered/Not Resolved]
  - Obesity surgery [Recovered/Resolved]
  - Menstruation irregular [Not Recovered/Not Resolved]

NARRATIVE: CASE EVENT DATE: 2014
